FAERS Safety Report 5619224-0 (Version None)
Quarter: 2008Q1

REPORT INFORMATION
  Report Type: 
  Country: None (occurrence: None)
  Receive Date: 20080205
  Receipt Date: 20080125
  Transmission Date: 20080703
  Serious: Yes (Hospitalization)
  Sender: FDA-Public Use
  Company Number: 2008BI001959

PATIENT
  Age: 28 Year
  Sex: Female
  Weight: 104.3273 kg

DRUGS (1)
  1. AVONEX [Suspect]
     Indication: MULTIPLE SCLEROSIS
     Dosage: 30 UG;QW;IM
     Route: 030

REACTIONS (6)
  - DRUG INEFFECTIVE [None]
  - IMMOBILE [None]
  - MULTIPLE SCLEROSIS [None]
  - NEURALGIA [None]
  - SPINAL DISORDER [None]
  - VISION BLURRED [None]
